FAERS Safety Report 22594524 (Version 2)
Quarter: 2023Q2

REPORT INFORMATION
  Report Type: Spontaneous
  Country: US (occurrence: US)
  Receive Date: 20230613
  Receipt Date: 20230621
  Transmission Date: 20230721
  Serious: No
  Sender: FDA-Public Use
  Company Number: US-LUPIN PHARMACEUTICALS INC.-2023-04506

PATIENT

DRUGS (2)
  1. ALBUTEROL SULFATE [Suspect]
     Active Substance: ALBUTEROL SULFATE
     Indication: Allergic bronchitis
     Dosage: UNK, 2 PUFFS BY MOUTH EVERY 4 HOURS
     Dates: start: 20230527
  2. ALBUTEROL SULFATE [Suspect]
     Active Substance: ALBUTEROL SULFATE
     Indication: Wheezing

REACTIONS (5)
  - Device delivery system issue [Unknown]
  - Drug dose omission by device [Unknown]
  - Product storage error [Unknown]
  - Product use in unapproved indication [Unknown]
  - No adverse event [Unknown]
